FAERS Safety Report 12446744 (Version 2)
Quarter: 2016Q4

REPORT INFORMATION
  Report Type: Spontaneous
  Country: US (occurrence: US)
  Receive Date: 20160608
  Receipt Date: 20161209
  Transmission Date: 20170207
  Serious: No
  Sender: FDA-Public Use
  Company Number: US-PFIZER INC-2016222340

PATIENT
  Age: 61 Year
  Sex: Female

DRUGS (7)
  1. NORCO [Concomitant]
     Active Substance: ACETAMINOPHEN\HYDROCODONE BITARTRATE
     Indication: PAIN
     Dosage: U5-325 MG PER TABLET, 1 TO 2 QD PRN
     Dates: start: 20160725
  2. LYRICA [Suspect]
     Active Substance: PREGABALIN
     Dosage: 75 MG, 3X/DAY
     Route: 048
  3. PREMPRO [Concomitant]
     Active Substance: ESTROGENS, CONJUGATED\MEDROXYPROGESTERONE ACETATE
     Dosage: 1 DF, 1X/DAY [ESTROGEN CONJUGATED: 0.3 MG]/[MEDROXYPROGESTERONE:1.5 MG]
     Route: 048
  4. TYLENOL WITH CODEINE [Concomitant]
     Active Substance: ACETAMINOPHEN\CODEINE PHOSPHATE
     Dosage: UNK
  5. ZOVIRAX [Concomitant]
     Active Substance: ACYCLOVIR
     Dosage: 400 MG, 4X/DAY (TAKE 1 TABLET)
     Route: 048
     Dates: start: 20160831
  6. DURAGESIC [Concomitant]
     Active Substance: FENTANYL
     Dosage: 12 MCG/HR PATCH, PLACE 1 PATCH ONTO THE SKIN EVERY THIRD DAY (EVERY 72 HOURS))
     Route: 062
     Dates: start: 20161019
  7. VOLTAREN [Concomitant]
     Active Substance: DICLOFENAC SODIUM
     Indication: PAIN
     Dosage: 1 % GEL 100 G, APPLY TOPICALLY 2 (TWO) TIMES DAILY
     Route: 061
     Dates: start: 20161109

REACTIONS (1)
  - Dizziness [Unknown]
